FAERS Safety Report 6498191-4 (Version None)
Quarter: 2009Q4

REPORT INFORMATION
  Report Type: 
  Country: None (occurrence: None)
  Receive Date: 20091127
  Receipt Date: 20090630
  Transmission Date: 20100525
  Serious: Yes (Hospitalization)
  Sender: FDA-Public Use
  Company Number: 288904

PATIENT
  Sex: Female
  Weight: 54.4 kg

DRUGS (1)
  1. NOVOLOG [Suspect]
     Indication: TYPE 1 DIABETES MELLITUS
     Dosage: SUBCUTAN-PUMP
     Route: 058

REACTIONS (1)
  - DIABETIC KETOACIDOSIS [None]
